FAERS Safety Report 8300771-8 (Version None)
Quarter: 2012Q2

REPORT INFORMATION
  Report Type: 
  Country: None (occurrence: None)
  Receive Date: 20120420
  Receipt Date: 20120417
  Transmission Date: 20120825
  Serious: Yes (Death)
  Sender: FDA-Public Use
  Company Number: PHEH2012US008249

PATIENT
  Sex: Female

DRUGS (23)
  1. DETROL [Concomitant]
  2. DITROPAN XL [Concomitant]
  3. SENNA [Concomitant]
  4. PLAVIX [Concomitant]
  5. EXJADE [Suspect]
     Dosage: 2250 MG, EVERY DAY
     Route: 048
  6. GUAIFENESIN [Concomitant]
  7. ACIDOPHILUS ^ZYMA^ [Concomitant]
  8. VITAMIN B-12 [Concomitant]
  9. ALBUTEROL [Concomitant]
  10. FERROUS SULFATE TAB [Concomitant]
  11. NORCO [Concomitant]
  12. MULTI-VITAMINS [Concomitant]
  13. GINKGO BILOBA [Concomitant]
  14. GABAPENTIN [Concomitant]
  15. MAGNESIUM CITRATE [Concomitant]
  16. LISINOPRIL [Concomitant]
  17. DULCOLAX [Concomitant]
  18. MILK OF MAGNESIA TAB [Concomitant]
  19. LOVASTATIN [Concomitant]
  20. SYNTHROID [Concomitant]
  21. ASPIRIN [Concomitant]
  22. AMLODIPINE [Concomitant]
  23. CALCIUM CARBONATE [Concomitant]

REACTIONS (1)
  - DEATH [None]
